FAERS Safety Report 7825791-9 (Version None)
Quarter: 2011Q4

REPORT INFORMATION
  Report Type: 
  Country: None (occurrence: None)
  Receive Date: 20111019
  Receipt Date: 20100202
  Transmission Date: 20120403
  Serious: No
  Sender: FDA-Public Use
  Company Number: US-BAYER-201013064NA

PATIENT
  Age: 46 Year
  Sex: Male

DRUGS (2)
  1. CIPROFLOXACIN [Suspect]
     Indication: PRODUCT USED FOR UNKNOWN INDICATION
  2. REVLIMID [Concomitant]
     Indication: MULTIPLE MYELOMA
     Dosage: 15 MG, UNK
     Dates: start: 20090601

REACTIONS (1)
  - DRUG HYPERSENSITIVITY [None]
